FAERS Safety Report 19602321 (Version 1)
Quarter: 2021Q3

REPORT INFORMATION
  Report Type: Spontaneous
  Country: US (occurrence: US)
  Receive Date: 20210723
  Receipt Date: 20210723
  Transmission Date: 20211014
  Serious: No
  Sender: FDA-Public Use
  Company Number: US-BAYER-2021-180497

PATIENT
  Sex: Female

DRUGS (2)
  1. MIRALAX [Suspect]
     Active Substance: POLYETHYLENE GLYCOL 3350
     Indication: GASTROINTESTINAL DISORDER
     Dosage: WHATEVER THE CAPS HOLD
     Route: 048
     Dates: start: 20210615, end: 202107
  2. MIRALAX [Suspect]
     Active Substance: POLYETHYLENE GLYCOL 3350
     Indication: GASTROINTESTINAL DISORDER
     Dosage: WHATEVER THE CAPS HOLD, QD

REACTIONS (3)
  - Extra dose administered [None]
  - Incorrect product administration duration [None]
  - Drug ineffective [None]

NARRATIVE: CASE EVENT DATE: 20210615
